FAERS Safety Report 9688901 (Version 2)
Quarter: 2013Q4

REPORT INFORMATION
  Report Type: Spontaneous
  Country: TR (occurrence: TR)
  Receive Date: 20131114
  Receipt Date: 20131114
  Transmission Date: 20140711
  Serious: Yes (Hospitalization)
  Sender: FDA-Public Use
  Company Number: TR-PFIZER INC-2013322594

PATIENT
  Age: 47 Year
  Sex: Female

DRUGS (3)
  1. METHYLPREDNISOLONE [Suspect]
     Indication: LETHARGY
     Dosage: 32 MG PER DAY
  2. METHYLPREDNISOLONE [Suspect]
     Indication: MUSCULAR WEAKNESS
  3. TOPIRAMATE [Concomitant]
     Indication: VASCULITIS

REACTIONS (1)
  - Drug-induced liver injury [Recovered/Resolved]
